FAERS Safety Report 11592702 (Version 2)
Quarter: 2015Q4

REPORT INFORMATION
  Report Type: Spontaneous
  Country: IT (occurrence: IT)
  Receive Date: 20151005
  Receipt Date: 20151014
  Transmission Date: 20160304
  Serious: Yes (Hospitalization)
  Sender: FDA-Public Use
  Company Number: IT-SA-2015SA148911

PATIENT
  Age: 75 Year
  Sex: Male

DRUGS (7)
  1. ORUDIS [Suspect]
     Active Substance: KETOPROFEN
     Indication: POSTOPERATIVE ANALGESIA
     Dosage: DOSE:2 UNIT(S)
     Route: 048
     Dates: start: 20150910, end: 20150917
  2. CLEXANE [Suspect]
     Active Substance: ENOXAPARIN SODIUM
     Indication: THROMBOSIS PROPHYLAXIS
     Dosage: DOSE:1 UNIT(S)
     Route: 058
     Dates: start: 20150909, end: 20150919
  3. TAMSULOSIN HYDROCHLORIDE. [Concomitant]
     Active Substance: TAMSULOSIN HYDROCHLORIDE
     Route: 048
  4. AMOXICILLIN/CLAVULANIC ACID [Suspect]
     Active Substance: AMOXICILLIN\CLAVULANIC ACID
     Indication: PYREXIA
     Route: 048
     Dates: start: 20150914, end: 20150917
  5. PANTORC [Concomitant]
     Active Substance: PANTOPRAZOLE SODIUM
     Route: 048
  6. TAVOR [Concomitant]
     Active Substance: LORAZEPAM
     Route: 048
  7. FINASTERIDE. [Concomitant]
     Active Substance: FINASTERIDE
     Route: 048

REACTIONS (1)
  - Rash morbilliform [Recovered/Resolved]

NARRATIVE: CASE EVENT DATE: 20150918
